FAERS Safety Report 4476344-4 (Version None)
Quarter: 2004Q4

REPORT INFORMATION
  Report Type: 
  Country: None (occurrence: None)
  Receive Date: 20041016
  Receipt Date: 20041011
  Transmission Date: 20050328
  Serious: Yes (Hospitalization)
  Sender: FDA-Public Use
  Company Number: DE-MERCK-0410DEU00299

PATIENT
  Age: 66 Year
  Sex: Male

DRUGS (2)
  1. VIOXX [Suspect]
     Indication: BACK PAIN
     Route: 048
     Dates: start: 20001201, end: 20030401
  2. VIOXX [Suspect]
     Route: 048
     Dates: start: 20030401, end: 20040701

REACTIONS (2)
  - CHEST PAIN [None]
  - HEADACHE [None]
